FAERS Safety Report 23919124 (Version 2)
Quarter: 2024Q2

REPORT INFORMATION
  Report Type: Spontaneous
  Country: IR (occurrence: IR)
  Receive Date: 20240530
  Receipt Date: 20240615
  Transmission Date: 20240716
  Serious: Yes (Hospitalization, Other)
  Sender: FDA-Public Use
  Company Number: IR-MACLEODS PHARMA-MAC2024047376

PATIENT

DRUGS (1)
  1. SILDENAFIL [Suspect]
     Active Substance: SILDENAFIL
     Indication: Product used for unknown indication
     Dosage: EVERY 8 H FOR 2 WEEKS
     Route: 065

REACTIONS (4)
  - Spinal cord infarction [Unknown]
  - Hypotension [Unknown]
  - Self-medication [Unknown]
  - Prescription drug used without a prescription [Unknown]
